FAERS Safety Report 5826617-5 (Version None)
Quarter: 2008Q3

REPORT INFORMATION
  Report Type: 
  Country: None (occurrence: None)
  Receive Date: 20080728
  Receipt Date: 20080728
  Transmission Date: 20090109
  Serious: No
  Sender: FDA-Public Use
  Company Number: None

PATIENT
  Age: 56 Year
  Sex: Male
  Weight: 86.1834 kg

DRUGS (2)
  1. BUDEPRION XL 150MG -TWICE-A-DAY- ANCHEN FOR TEVA [Suspect]
     Indication: ANXIETY
     Dosage: 150MG TWICW-A-DAY
  2. BUDEPRION XL 150MG -TWICE-A-DAY- ANCHEN FOR TEVA [Suspect]
     Indication: DEPRESSION
     Dosage: 150MG TWICW-A-DAY

REACTIONS (5)
  - ANXIETY [None]
  - NAUSEA [None]
  - NERVOUSNESS [None]
  - PHARMACEUTICAL PRODUCT COMPLAINT [None]
  - TREMOR [None]
